FAERS Safety Report 8390640-X (Version None)
Quarter: 2012Q2

REPORT INFORMATION
  Report Type: 
  Country: None (occurrence: None)
  Receive Date: 20120529
  Receipt Date: 20120516
  Transmission Date: 20120825
  Serious: Yes (Other)
  Sender: FDA-Public Use
  Company Number: AT-RANBAXY-2012RR-56173

PATIENT
  Age: 62 Year
  Sex: Female

DRUGS (16)
  1. AMITRIPTYLINE HCL [Suspect]
     Indication: DEPRESSION
     Dosage: 100 MG/DAY
     Route: 065
  2. QUETIAPINE [Suspect]
     Indication: DELIRIUM
     Dosage: UNK
     Route: 065
  3. LEVOTHYROXINE SODIUM [Concomitant]
     Indication: PRODUCT USED FOR UNKNOWN INDICATION
     Dosage: 150 UG/DAY
     Route: 065
  4. NITROGLYCERIN [Concomitant]
     Indication: PRODUCT USED FOR UNKNOWN INDICATION
     Dosage: UNK
     Route: 062
  5. FENTANYL-100 [Suspect]
     Dosage: 150 UG
     Route: 062
  6. DIAZEPAM [Suspect]
     Indication: DEPRESSION
     Dosage: 5 MG, BID
     Route: 065
  7. METOPROLOL TARTRATE [Concomitant]
     Indication: PRODUCT USED FOR UNKNOWN INDICATION
     Dosage: 47.5 MG/DAY
     Route: 065
  8. HYDROMORPHONE HCL [Suspect]
     Indication: PRODUCT USED FOR UNKNOWN INDICATION
     Dosage: 5.2 MG
     Route: 048
  9. FLUOXETINE [Suspect]
     Indication: DEPRESSION
     Dosage: 40 MG/DAY
     Route: 065
  10. SIMVASTATIN [Concomitant]
     Indication: PRODUCT USED FOR UNKNOWN INDICATION
     Dosage: 40 MG/DAY
     Route: 065
  11. ALPRAZOLAM [Suspect]
     Indication: DEPRESSION
     Dosage: 0.5 MG/DAY
     Route: 065
  12. FENTANYL-100 [Suspect]
     Indication: PRODUCT USED FOR UNKNOWN INDICATION
     Dosage: 75 UG IN 72 HOURS
     Route: 062
  13. ANASTROZOLE [Concomitant]
     Indication: BREAST CANCER
     Dosage: UNK
     Route: 065
  14. GABAPENTIN [Suspect]
     Indication: NEURALGIA
     Dosage: UP TO 900 MG/DAY
     Route: 065
  15. DIPYRONE TAB [Concomitant]
     Indication: PRODUCT USED FOR UNKNOWN INDICATION
     Dosage: 4 G/DAY
     Route: 065
  16. ASPIRIN [Concomitant]
     Indication: PRODUCT USED FOR UNKNOWN INDICATION
     Dosage: 100 MG/DAY
     Route: 065

REACTIONS (4)
  - DELIRIUM [None]
  - HEMIPARESIS [None]
  - RENAL FAILURE [None]
  - SEPSIS [None]
